FAERS Safety Report 6970702-1 (Version None)
Quarter: 2010Q3

REPORT INFORMATION
  Report Type: 
  Country: None (occurrence: None)
  Receive Date: 20100908
  Receipt Date: 20100830
  Transmission Date: 20110219
  Serious: No
  Sender: FDA-Public Use
  Company Number: US-JNJFOC-20100901421

PATIENT
  Sex: Female
  Weight: 150.6 kg

DRUGS (12)
  1. FENTANYL CITRATE [Suspect]
     Indication: INTERVERTEBRAL DISC PROTRUSION
     Route: 062
  2. NOVOLOG [Concomitant]
     Indication: DIABETES MELLITUS
     Dosage: 8 UNITS
     Route: 058
  3. NOVOLOG [Concomitant]
     Dosage: 50 UNITS
     Route: 058
  4. NOVOLOG [Concomitant]
     Dosage: 8 UNITS
     Route: 058
  5. PLAVIX [Concomitant]
     Indication: CARDIAC DISORDER
     Route: 048
  6. ZOCOR [Concomitant]
     Indication: BLOOD CHOLESTEROL INCREASED
     Route: 048
  7. CLONIDINE [Concomitant]
     Indication: HYPERTENSION
     Route: 048
  8. LASIX [Concomitant]
     Indication: FLUID RETENTION
     Route: 048
  9. DYAZIDE [Concomitant]
     Indication: CARDIAC DISORDER
     Route: 048
  10. CYMBALTA [Concomitant]
     Indication: DEPRESSION
     Route: 048
  11. ADVAIR DISKUS 100/50 [Concomitant]
     Indication: ASTHMA
     Route: 055
  12. ALBUTEROL [Concomitant]
     Indication: ASTHMA
     Route: 055

REACTIONS (4)
  - INADEQUATE ANALGESIA [None]
  - PRODUCT QUALITY ISSUE [None]
  - WEIGHT DECREASED [None]
  - WRONG TECHNIQUE IN DRUG USAGE PROCESS [None]
